FAERS Safety Report 13697741 (Version 1)
Quarter: 2017Q2

REPORT INFORMATION
  Report Type: Spontaneous
  Country: GB (occurrence: GB)
  Receive Date: 20170628
  Receipt Date: 20170628
  Transmission Date: 20170830
  Serious: Yes (Hospitalization)
  Sender: FDA-Public Use
  Company Number: GB-ELI_LILLY_AND_COMPANY-GB201706010416

PATIENT
  Sex: Female

DRUGS (4)
  1. OMEPRAZOL                          /00661201/ [Concomitant]
     Active Substance: OMEPRAZOLE
     Dosage: 20 MG, DAILY
     Route: 065
  2. CYCLIZINE [Concomitant]
     Active Substance: CYCLIZINE
     Dosage: UNK, UNKNOWN
     Route: 065
  3. HYDROXYCHLOROQUINE SULFATE. [Concomitant]
     Active Substance: HYDROXYCHLOROQUINE SULFATE
     Dosage: 200 MG, DAILY
     Route: 065
  4. FORSTEO 250UG/ML [Suspect]
     Active Substance: TERIPARATIDE
     Indication: PRODUCT USED FOR UNKNOWN INDICATION
     Dosage: UNK, UNKNOWN
     Route: 065

REACTIONS (4)
  - Pain [Unknown]
  - Rheumatoid arthritis [Unknown]
  - Lower respiratory tract infection [Unknown]
  - Pharyngitis [Unknown]
